FAERS Safety Report 9565495 (Version 2)
Quarter: 2019Q4

REPORT INFORMATION
  Report Type: Report from Study
  Country: JP (occurrence: JP)
  Receive Date: 20130930
  Receipt Date: 20191111
  Transmission Date: 20200122
  Serious: Yes (Other)
  Sender: FDA-Public Use
  Company Number: JP-GILEAD-2013-0084201

PATIENT
  Age: 35 Year
  Sex: Male

DRUGS (16)
  1. EMTRICITABINE/TENOFOVIR DISOPROXIL FUMARATE [Suspect]
     Active Substance: EMTRICITABINE\TENOFOVIR DISOPROXIL FUMARATE
     Indication: HIV INFECTION
     Dosage: 1 DOSAGE FORM, QD
     Route: 048
     Dates: start: 20080904, end: 20130609
  2. EXCEGRAN [Concomitant]
     Active Substance: ZONISAMIDE
     Indication: EPILEPSY
     Dosage: UNK
     Route: 048
     Dates: start: 20120401
  3. KALETRA [Concomitant]
     Active Substance: LOPINAVIR\RITONAVIR
     Indication: PRODUCT USED FOR UNKNOWN INDICATION
     Dosage: 2 DOSAGE FORM
     Route: 048
     Dates: start: 20100401, end: 20150803
  4. TEGRETOL [Concomitant]
     Active Substance: CARBAMAZEPINE
     Indication: EPILEPSY
     Dosage: UNK
     Route: 048
     Dates: start: 20120401
  5. POLYFUL [Concomitant]
     Active Substance: CALCIUM POLYCARBOPHIL
     Indication: IRRITABLE BOWEL SYNDROME
     Dosage: UNK
     Route: 048
     Dates: start: 20121204, end: 20130107
  6. ISENTRESS [Concomitant]
     Active Substance: RALTEGRAVIR POTASSIUM
     Indication: HIV INFECTION
     Dosage: UNK
     Dates: start: 20080904
  7. EMTRICITABINE/TENOFOVIR DISOPROXIL FUMARATE [Suspect]
     Active Substance: EMTRICITABINE\TENOFOVIR DISOPROXIL FUMARATE
     Dosage: 1 DOSAGE FORM, QD
     Route: 048
     Dates: start: 20140902, end: 20150803
  8. ISENTRESS [Concomitant]
     Active Substance: RALTEGRAVIR POTASSIUM
     Route: 048
     Dates: start: 20080904, end: 20150803
  9. NOVACT M FUJISAWA [Concomitant]
     Indication: FACTOR IX DEFICIENCY
     Dosage: UNK
     Route: 041
     Dates: start: 20120401, end: 20150518
  10. URSO [Concomitant]
     Active Substance: URSODIOL
     Indication: HEPATITIS C
     Dosage: 200 MG
     Route: 048
     Dates: start: 20120403
  11. BONOTEO [Concomitant]
     Active Substance: MINODRONIC ACID
     Indication: PRODUCT USED FOR UNKNOWN INDICATION
     Dosage: UNK
     Dates: start: 20121002
  12. ALPROLIX [Concomitant]
     Active Substance: EFTRENONACOG ALFA
     Indication: FACTOR IX DEFICIENCY
     Route: 042
     Dates: start: 20150519
  13. KALETRA [Concomitant]
     Active Substance: LOPINAVIR\RITONAVIR
     Dosage: 4 DOSAGE FORM, QD
     Route: 048
     Dates: start: 20080904, end: 20100331
  14. EMTRICITABINE/TENOFOVIR DISOPROXIL FUMARATE [Suspect]
     Active Substance: EMTRICITABINE\TENOFOVIR DISOPROXIL FUMARATE
     Dosage: 1 DOSAGE FORM, QD
     Route: 048
     Dates: start: 20151027, end: 20170508
  15. POLYFUL [Concomitant]
     Active Substance: CALCIUM POLYCARBOPHIL
     Dosage: UNK
     Route: 048
     Dates: start: 20121002, end: 20121203
  16. TIVICAY [Concomitant]
     Active Substance: DOLUTEGRAVIR SODIUM
     Indication: HIV INFECTION
     Route: 048
     Dates: start: 20151027

REACTIONS (1)
  - Osteoporosis [Not Recovered/Not Resolved]

NARRATIVE: CASE EVENT DATE: 20121002
